FAERS Safety Report 25456459 (Version 1)
Quarter: 2025Q2

REPORT INFORMATION
  Report Type: Report from Study
  Country: US (occurrence: US)
  Receive Date: 20250619
  Receipt Date: 20250619
  Transmission Date: 20250717
  Serious: Yes (Hospitalization, Other)
  Sender: PURDUE
  Company Number: US-NAPPMUNDI-GBR-2025-0126441

PATIENT

DRUGS (1)
  1. BUPRENORPHINE [Suspect]
     Active Substance: BUPRENORPHINE
     Indication: Drug use disorder
     Route: 065

REACTIONS (2)
  - Bacteraemia [Unknown]
  - Off label use [Unknown]
